FAERS Safety Report 7750527-X (Version None)
Quarter: 2011Q3

REPORT INFORMATION
  Report Type: 
  Country: None (occurrence: None)
  Receive Date: 20110914
  Receipt Date: 20110909
  Transmission Date: 20111222
  Serious: Yes (Death)
  Sender: FDA-Public Use
  Company Number: US-ASTRAZENECA-2010SE58820

PATIENT
  Age: 59 Year
  Sex: Male

DRUGS (2)
  1. NEXIUM [Suspect]
     Route: 048
  2. IRESSA [Suspect]
     Route: 048

REACTIONS (3)
  - INCORRECT DOSE ADMINISTERED [None]
  - NEOPLASM MALIGNANT [None]
  - GALLBLADDER DISORDER [None]
